FAERS Safety Report 6561952-7 (Version None)
Quarter: 2010Q1

REPORT INFORMATION
  Report Type: 
  Country: None (occurrence: None)
  Receive Date: 20100130
  Receipt Date: 20091226
  Transmission Date: 20100710
  Serious: Yes (Hospitalization)
  Sender: FDA-Public Use
  Company Number: US-ABBOTT-09P-163-0595794-00

PATIENT
  Sex: Female
  Weight: 61.29 kg

DRUGS (3)
  1. HUMIRA [Suspect]
     Indication: CROHN'S DISEASE
     Dates: start: 20040101
  2. HUMIRA [Suspect]
  3. HUMIRA [Suspect]
     Dates: start: 20081101, end: 20090701

REACTIONS (6)
  - ABDOMINAL PAIN [None]
  - ABSCESS INTESTINAL [None]
  - CROHN'S DISEASE [None]
  - DRUG INEFFECTIVE [None]
  - FUNGAL INFECTION [None]
  - PYREXIA [None]
